FAERS Safety Report 16806944 (Version 2)
Quarter: 2019Q3

REPORT INFORMATION
  Report Type: Spontaneous
  Country: BE (occurrence: BE)
  Receive Date: 20190913
  Receipt Date: 20190925
  Transmission Date: 20191005
  Serious: Yes (Death, Life-Threatening, Hospitalization, Other)
  Sender: FDA-Public Use
  Company Number: BE-GLAXOSMITHKLINE-BE2019163254

PATIENT
  Age: 65 Year
  Sex: Female

DRUGS (13)
  1. EPINEPHRINE. [Suspect]
     Active Substance: EPINEPHRINE
     Indication: PRODUCT USED FOR UNKNOWN INDICATION
     Dosage: UNK (UP TO 6 ?G/KG PER MIN)
     Route: 042
  2. TRAMADOL. [Suspect]
     Active Substance: TRAMADOL
     Indication: MENTAL DISORDER
     Dosage: 300 MG, 1X/DAY
     Route: 065
  3. DIAZEPAM. [Suspect]
     Active Substance: DIAZEPAM
     Indication: PRODUCT USED FOR UNKNOWN INDICATION
     Dosage: UNK
     Route: 065
  4. MIRTAZAPINE. [Suspect]
     Active Substance: MIRTAZAPINE
     Indication: MENTAL DISORDER
     Dosage: 15 MG, QD
     Route: 065
  5. NOREPINEPHRINE. [Suspect]
     Active Substance: NOREPINEPHRINE
     Indication: SUPRAVENTRICULAR TACHYCARDIA
     Dosage: UP TO 6 MICROG/KG/MIN
     Route: 042
  6. BUPROPION. [Suspect]
     Active Substance: BUPROPION
     Indication: MENTAL DISORDER
     Dosage: 300 MG, 1X/DAY
     Route: 065
  7. NEFOPAM [Suspect]
     Active Substance: NEFOPAM
     Dosage: 120 MG, QD
     Route: 048
  8. AMISULPRIDE [Suspect]
     Active Substance: AMISULPRIDE
     Indication: MENTAL DISORDER
     Dosage: 50 MG, 1X/DAY
     Route: 065
  9. NEFOPAM [Suspect]
     Active Substance: NEFOPAM
     Dosage: 60 MG, QD
     Route: 048
  10. AMITRIPTYLINE [Suspect]
     Active Substance: AMITRIPTYLINE
     Indication: MENTAL DISORDER
     Dosage: 75 MG, 1X/DAY
     Route: 065
  11. ARIPIPRAZOLE. [Suspect]
     Active Substance: ARIPIPRAZOLE
     Indication: MENTAL DISORDER
     Dosage: 15 MG, 1X/DAY
     Route: 065
  12. NEFOPAM [Suspect]
     Active Substance: NEFOPAM
     Indication: ANALGESIC THERAPY
     Dosage: 60 MG, QD
     Route: 048
  13. EPINEPHRINE. [Concomitant]
     Active Substance: EPINEPHRINE
     Indication: SUPRAVENTRICULAR TACHYCARDIA
     Dosage: UNK (UP TO 6 MICROG/KG/MIN)
     Route: 050

REACTIONS (14)
  - Serotonin syndrome [Fatal]
  - Chronic obstructive pulmonary disease [Not Recovered/Not Resolved]
  - Hyperhidrosis [Fatal]
  - Autonomic nervous system imbalance [Fatal]
  - Loss of consciousness [Unknown]
  - Supraventricular tachycardia [Unknown]
  - Respiratory failure [Unknown]
  - Myoclonus [Fatal]
  - Drug ineffective [Unknown]
  - Haemodynamic instability [Unknown]
  - Shock [Fatal]
  - Mydriasis [Fatal]
  - Dyspnoea [Fatal]
  - Hyperlactacidaemia [Unknown]
